FAERS Safety Report 18943843 (Version 7)
Quarter: 2021Q3

REPORT INFORMATION
  Report Type: Report from Study
  Country: CO (occurrence: CO)
  Receive Date: 20210226
  Receipt Date: 20210824
  Transmission Date: 20211014
  Serious: Yes (Death, Hospitalization, Other)
  Sender: FDA-Public Use
  Company Number: CO-AMGEN-COLSL2020145864

PATIENT
  Age: 55 Year
  Sex: Female

DRUGS (3)
  1. VECTIBIX [Suspect]
     Active Substance: PANITUMUMAB
     Dosage: 450 MILLIGRAM, Q2WK
     Route: 042
     Dates: start: 20210621
  2. VECTIBIX [Suspect]
     Active Substance: PANITUMUMAB
     Indication: COLORECTAL CANCER METASTATIC
     Dosage: 450 MILLIGRAM, Q2WK
     Route: 042
     Dates: start: 20200821
  3. VECTIBIX [Suspect]
     Active Substance: PANITUMUMAB
     Dosage: 450 MILLIGRAM, Q2WK
     Route: 042
     Dates: start: 20210223

REACTIONS (7)
  - Cerebral cyst [Recovering/Resolving]
  - Cough [Not Recovered/Not Resolved]
  - Acne [Not Recovered/Not Resolved]
  - Metastases to lung [Not Recovered/Not Resolved]
  - Rash [Recovering/Resolving]
  - Death [Fatal]
  - Dermatitis [Recovering/Resolving]

NARRATIVE: CASE EVENT DATE: 20200827
